FAERS Safety Report 9196376 (Version 1)
Quarter: 2013Q1

REPORT INFORMATION
  Report Type: Spontaneous
  Country: FR (occurrence: FR)
  Receive Date: 20130328
  Receipt Date: 20130328
  Transmission Date: 20140127
  Serious: Yes (Other)
  Sender: FDA-Public Use
  Company Number: FR-PFIZER INC-2013094087

PATIENT
  Sex: Male

DRUGS (2)
  1. CRIZOTINIB [Suspect]
  2. PREVISCAN [Concomitant]

REACTIONS (1)
  - Toxic skin eruption [Recovered/Resolved]
